FAERS Safety Report 6134299-0 (Version None)
Quarter: 2009Q1

REPORT INFORMATION
  Report Type: 
  Country: None (occurrence: None)
  Receive Date: 20090325
  Receipt Date: 20090309
  Transmission Date: 20090719
  Serious: Yes (Death)
  Sender: FDA-Public Use
  Company Number: 2008S1018340

PATIENT
  Age: 31 Year
  Sex: Male

DRUGS (8)
  1. AZATHIOPRINE [Suspect]
     Indication: CROHN'S DISEASE
  2. MERCAPTOPURINE [Suspect]
     Indication: CROHN'S DISEASE
  3. INFLIXIMAB (INFLIXIMAB) [Suspect]
     Indication: DRUG USE FOR UNKNOWN INDICATION
  4. CORTICOSTEROIDS (CORTICOSTEROIDS) [Suspect]
     Indication: DRUG USE FOR UNKNOWN INDICATION
  5. PREDNISOLONE [Suspect]
     Indication: DRUG USE FOR UNKNOWN INDICATION
     Dosage: 5 MG;UNKNOWN;DAILY
  6. REMICADE [Suspect]
     Indication: CROHN'S DISEASE
     Dosage: 5 MG;UNKNOWN;INTRAVENOUS;UNKNOWN
     Route: 042
  7. METRONIDAZOLE [Concomitant]
  8. VITAMIN B12 [Concomitant]

REACTIONS (2)
  - DIABETIC KETOACIDOSIS [None]
  - HEPATOSPLENIC T-CELL LYMPHOMA [None]
